FAERS Safety Report 16170101 (Version 3)
Quarter: 2019Q2

REPORT INFORMATION
  Report Type: Spontaneous
  Country: IT (occurrence: IT)
  Receive Date: 20190408
  Receipt Date: 20190524
  Transmission Date: 20190711
  Serious: Yes (Hospitalization)
  Sender: FDA-Public Use
  Company Number: IT-PFIZER INC-2019143926

PATIENT
  Age: 43 Year
  Sex: Female

DRUGS (4)
  1. ZYVOXID [Suspect]
     Active Substance: LINEZOLID
     Indication: PULMONARY TUBERCULOSIS
     Dosage: 600 MG, 1X/DAY
     Route: 048
     Dates: start: 20180424, end: 20190204
  2. MOXIFLOXACIN. [Concomitant]
     Active Substance: MOXIFLOXACIN
     Dosage: 800 MG, 1X/DAY
  3. ETHAMBUTOL [Suspect]
     Active Substance: ETHAMBUTOL HYDROCHLORIDE
     Indication: PULMONARY TUBERCULOSIS
     Dosage: 1 G, 1X/DAY
     Route: 048
     Dates: start: 20180314, end: 20190204
  4. CYCLOSERINE. [Concomitant]
     Active Substance: CYCLOSERINE
     Dosage: 500 MG, 1X/DAY

REACTIONS (8)
  - Product use in unapproved indication [Unknown]
  - Off label use [Unknown]
  - Hypoaesthesia [Recovering/Resolving]
  - Optic neuritis [Recovering/Resolving]
  - Neuropathy peripheral [Recovering/Resolving]
  - Visual impairment [Recovering/Resolving]
  - Paraesthesia [Recovering/Resolving]
  - Product use issue [Unknown]

NARRATIVE: CASE EVENT DATE: 20180424
